FAERS Safety Report 5078708-7 (Version None)
Quarter: 2006Q3

REPORT INFORMATION
  Report Type: 
  Country: None (occurrence: None)
  Receive Date: 20060809
  Receipt Date: 20060809
  Transmission Date: 20061208
  Serious: Yes (Life-Threatening, Hospitalization)
  Sender: FDA-Public Use
  Company Number: None

PATIENT
  Age: 35 Year
  Sex: Male
  Weight: 109 kg

DRUGS (15)
  1. HURRICAINE TOPICAL SPRAY BENZOCAINE 20% BEUTLICH [Suspect]
     Indication: GASTROINTESTINAL TUBE INSERTION
     Dosage: SPRAYS 2-3 TIMES
     Route: 065
     Dates: start: 20060730, end: 20060730
  2. AMBIEN [Concomitant]
  3. BENICAR [Concomitant]
  4. LORTAB [Concomitant]
  5. MIRALAX [Concomitant]
  6. NEOMYCIN [Concomitant]
  7. DILAUDID [Concomitant]
  8. TYLENOL W/ CODEINE NO. 3 [Concomitant]
  9. FLAGYL I.V. [Concomitant]
  10. ROCEPHIN [Concomitant]
  11. VASOTEC [Concomitant]
  12. CEPACOL LOZENGES [Concomitant]
  13. IBUPROFEN [Concomitant]
  14. PROTONIX [Concomitant]
  15. REGLAN [Concomitant]

REACTIONS (3)
  - INCORRECT DRUG ADMINISTRATION DURATION [None]
  - MEDICATION ERROR [None]
  - METHAEMOGLOBINAEMIA [None]
